FAERS Safety Report 8950419 (Version 15)
Quarter: 2017Q1

REPORT INFORMATION
  Report Type: Report from Study
  Country: US (occurrence: US)
  Receive Date: 20121206
  Receipt Date: 20170315
  Transmission Date: 20170429
  Serious: Yes (Other)
  Sender: FDA-Public Use
  Company Number: US-ROCHE-1163862

PATIENT
  Age: 62 Year
  Sex: Female

DRUGS (17)
  1. XOLAIR [Suspect]
     Active Substance: OMALIZUMAB
     Indication: HYPERSENSITIVITY
     Dosage: 1 VIAL TWICE A MONTH
     Route: 065
  2. LEVALBUTEROL. [Concomitant]
     Active Substance: LEVALBUTEROL
  3. CARISOPRODOL. [Concomitant]
     Active Substance: CARISOPRODOL
     Indication: HYPOTONIA
     Route: 065
  4. SINGULAIR [Concomitant]
     Active Substance: MONTELUKAST SODIUM
  5. XOPENEX [Concomitant]
     Active Substance: LEVALBUTEROL HYDROCHLORIDE
     Dosage: 125MG/3ML
     Route: 065
  6. NIASPAN ER [Concomitant]
     Active Substance: NIACIN
     Indication: BLOOD CHOLESTEROL
     Route: 065
  7. KETOROLAC [Suspect]
     Active Substance: KETOROLAC\KETOROLAC TROMETHAMINE
     Indication: PRODUCT USED FOR UNKNOWN INDICATION
     Route: 065
  8. PREDNISONE. [Concomitant]
     Active Substance: PREDNISONE
     Dosage: KILLED HER IMMUNE SYSTEM
     Route: 065
     Dates: end: 2005
  9. XYZAL [Concomitant]
     Active Substance: LEVOCETIRIZINE DIHYDROCHLORIDE
     Indication: HYPERSENSITIVITY
     Route: 065
  10. XOLAIR [Suspect]
     Active Substance: OMALIZUMAB
     Indication: ASTHMA
  11. XOLAIR [Suspect]
     Active Substance: OMALIZUMAB
     Indication: ASTHMA
     Route: 065
     Dates: start: 2004
  12. XOLAIR [Suspect]
     Active Substance: OMALIZUMAB
     Indication: CHRONIC OBSTRUCTIVE PULMONARY DISEASE
     Route: 058
  13. OXYGEN. [Concomitant]
     Active Substance: OXYGEN
     Dosage: 24 HOURS/7 DAYS A WEEK
     Route: 065
  14. SPIRIVA [Concomitant]
     Active Substance: TIOTROPIUM BROMIDE MONOHYDRATE
     Route: 065
  15. XOLAIR [Suspect]
     Active Substance: OMALIZUMAB
     Indication: CHEMICAL INJURY
     Dosage: RECEIVES 2 150MG INJECTIONS EVERY 14 DAYS
     Route: 065
  16. IVIG [Suspect]
     Active Substance: HUMAN IMMUNOGLOBULIN G
     Indication: PRODUCT USED FOR UNKNOWN INDICATION
     Route: 065
     Dates: start: 2005
  17. EDECRIN [Concomitant]
     Active Substance: ETHACRYNIC ACID
     Route: 065

REACTIONS (42)
  - Pneumonia [Unknown]
  - Drug hypersensitivity [Unknown]
  - Sinus congestion [Not Recovered/Not Resolved]
  - Sinusitis [Unknown]
  - Oropharyngeal blistering [Unknown]
  - Respiratory arrest [Unknown]
  - Weight increased [Unknown]
  - Middle ear effusion [Unknown]
  - Eye discharge [Unknown]
  - Skin discolouration [Unknown]
  - Ear discomfort [Unknown]
  - Respiratory arrest [Unknown]
  - Alopecia [Unknown]
  - Malaise [Unknown]
  - Bronchitis [Unknown]
  - Oxygen saturation decreased [Unknown]
  - Oral mucosal blistering [Unknown]
  - Lip swelling [Unknown]
  - Cough [Unknown]
  - Sleep apnoea syndrome [Not Recovered/Not Resolved]
  - Pruritus [Unknown]
  - Anaphylactic reaction [Recovered/Resolved]
  - Insomnia [Unknown]
  - Chemical burn of respiratory tract [Unknown]
  - Oropharyngeal pain [Not Recovered/Not Resolved]
  - Hypersensitivity [Unknown]
  - Migraine [Unknown]
  - Vomiting [Unknown]
  - Hypertension [Unknown]
  - Productive cough [Not Recovered/Not Resolved]
  - Headache [Unknown]
  - Infusion related reaction [Unknown]
  - Urticaria [Recovering/Resolving]
  - Ear pruritus [Unknown]
  - Lung infection [Unknown]
  - Dyspnoea [Not Recovered/Not Resolved]
  - Rash [Not Recovered/Not Resolved]
  - Nausea [Unknown]
  - Lacrimation increased [Unknown]
  - Nasal congestion [Unknown]
  - Skin burning sensation [Unknown]
  - Swollen tongue [Unknown]

NARRATIVE: CASE EVENT DATE: 2005
